FAERS Safety Report 18569727 (Version 1)
Quarter: 2020Q4

REPORT INFORMATION
  Report Type: Spontaneous
  Country: US (occurrence: US)
  Receive Date: 20201202
  Receipt Date: 20201202
  Transmission Date: 20210114
  Serious: Yes (Hospitalization)
  Sender: FDA-Public Use
  Company Number: US-PFIZER INC-2020473306

PATIENT
  Age: 67 Year
  Sex: Female
  Weight: 64 kg

DRUGS (1)
  1. IBRANCE [Suspect]
     Active Substance: PALBOCICLIB
     Indication: BREAST CANCER
     Dosage: 125 MG, CYCLIC [21 DAYS ON, 7 DAYS OFF]
     Route: 048
     Dates: start: 20201029

REACTIONS (3)
  - Dysphagia [Unknown]
  - Discoloured vomit [Unknown]
  - Dry mouth [Unknown]
